FAERS Safety Report 14694374 (Version 2)
Quarter: 2018Q2

REPORT INFORMATION
  Report Type: Spontaneous
  Country: US (occurrence: US)
  Receive Date: 20180329
  Receipt Date: 20180419
  Transmission Date: 20180711
  Serious: Yes (Death)
  Sender: FDA-Public Use
  Company Number: US-LUNDBECK-DKLU2046270

PATIENT
  Age: 76 Year
  Sex: Female
  Weight: 78 kg

DRUGS (2)
  1. MIDODRINE [Concomitant]
     Active Substance: MIDODRINE
     Indication: PRODUCT USED FOR UNKNOWN INDICATION
     Route: 065
  2. NORTHERA [Suspect]
     Active Substance: DROXIDOPA
     Indication: NEURODEGENERATIVE DISORDER
     Route: 048
     Dates: start: 20170608, end: 20180301

REACTIONS (1)
  - Death [Fatal]

NARRATIVE: CASE EVENT DATE: 20180325
